FAERS Safety Report 8083380-8 (Version None)
Quarter: 2012Q1

REPORT INFORMATION
  Report Type: 
  Country: None (occurrence: None)
  Receive Date: 20120127
  Receipt Date: 20110208
  Transmission Date: 20120608
  Serious: No
  Sender: FDA-Public Use
  Company Number: US-ABBOTT-11P-163-0702813-00

PATIENT
  Sex: Female
  Weight: 92.616 kg

DRUGS (3)
  1. PREDNISONE TAB [Concomitant]
     Indication: CROHN'S DISEASE
     Route: 048
     Dates: start: 20110101
  2. UNKNOWN ANTIBIOTIC [Concomitant]
     Indication: CROHN'S DISEASE
     Dates: start: 20110101, end: 20110101
  3. HUMIRA [Suspect]
     Indication: CROHN'S DISEASE
     Dates: start: 20080101, end: 20101201

REACTIONS (4)
  - CROHN'S DISEASE [None]
  - DRUG DOSE OMISSION [None]
  - ABDOMINAL PAIN [None]
  - GASTROINTESTINAL INFLAMMATION [None]
